FAERS Safety Report 4462597-5 (Version None)
Quarter: 2004Q3

REPORT INFORMATION
  Report Type: 
  Country: None (occurrence: None)
  Receive Date: 20040928
  Receipt Date: 20040913
  Transmission Date: 20050211
  Serious: Yes (Other)
  Sender: FDA-Public Use
  Company Number: 2004233211PL

PATIENT
  Age: 4 Year
  Sex: Male

DRUGS (11)
  1. ETOPOSIDE [Suspect]
     Indication: ACUTE LYMPHOCYTIC LEUKAEMIA
  2. VINCRISTINE SULFATE [Suspect]
     Indication: ACUTE LYMPHOCYTIC LEUKAEMIA
  3. CYCLOPHOSPHAMIDE [Suspect]
     Indication: ACUTE LYMPHOCYTIC LEUKAEMIA
  4. METHOTREXATE [Suspect]
     Indication: ACUTE LYMPHOCYTIC LEUKAEMIA
  5. DELTASONE [Suspect]
     Indication: ACUTE LYMPHOCYTIC LEUKAEMIA
  6. DAUNORUBICIN (DAUNORUBICIN HYDROCHLORIDE) SOLUTION, STERILE [Suspect]
     Indication: ACUTE LYMPHOCYTIC LEUKAEMIA
  7. CYTOSAR-U [Suspect]
     Indication: ACUTE LYMPHOCYTIC LEUKAEMIA
  8. MIDAZOLAM(MIDAZOLAM) SOLUTION, STERILE [Suspect]
     Indication: ACUTE LYMPHOCYTIC LEUKAEMIA
     Dosage: ORAL;   IV
     Route: 048
  9. L-ASPARAGINACE(ASPARAGINASE) [Suspect]
     Indication: ACUTE LYMPHOCYTIC LEUKAEMIA
  10. THIOTEPA [Suspect]
     Indication: ACUTE LYMPHOCYTIC LEUKAEMIA
  11. KETAMINE HCL [Suspect]
     Indication: ANAESTHESIA
     Dosage: 1 DF, QD, IV
     Route: 042

REACTIONS (14)
  - ACUTE LYMPHOCYTIC LEUKAEMIA [None]
  - ANAESTHETIC COMPLICATION [None]
  - ANXIETY [None]
  - BLOOD LACTATE DEHYDROGENASE INCREASED [None]
  - COMPLICATIONS OF BONE MARROW TRANSPLANT [None]
  - CONDITION AGGRAVATED [None]
  - CONFUSIONAL STATE [None]
  - DEPRESSED LEVEL OF CONSCIOUSNESS [None]
  - DIARRHOEA [None]
  - HYPERGLYCAEMIA [None]
  - HYPONATRAEMIA [None]
  - METABOLIC ACIDOSIS [None]
  - MUSCLE RIGIDITY [None]
  - RESPIRATORY ALKALOSIS [None]
